FAERS Safety Report 25539062 (Version 1)
Quarter: 2025Q3

REPORT INFORMATION
  Report Type: Spontaneous
  Country: US (occurrence: None)
  Receive Date: 20250709
  Receipt Date: 20250709
  Transmission Date: 20251021
  Serious: Yes (Hospitalization)
  Sender: FDA-CTU
  Company Number: None

PATIENT
  Age: 62 Year
  Sex: Male

DRUGS (23)
  1. TACROLIMUS [Suspect]
     Active Substance: TACROLIMUS
     Indication: Lung transplant rejection
     Dosage: 2 MG TWICE A DY ORAL
     Route: 048
     Dates: start: 20250610
  2. MYCOPHENOLATE MOFETIL [Suspect]
     Active Substance: MYCOPHENOLATE MOFETIL
     Indication: Lung transplant rejection
     Dosage: 500 MG TWICE A DAY ORAL
     Route: 048
  3. ACETAMINOPHEN [Concomitant]
     Active Substance: ACETAMINOPHEN
  4. ASPIRIN [Concomitant]
     Active Substance: ASPIRIN
  5. ATOVAQUONE [Concomitant]
     Active Substance: ATOVAQUONE
  6. AZITHROMYCIN [Concomitant]
     Active Substance: AZITHROMYCIN
  7. BD PEN NEEDLE NANO [Concomitant]
  8. Calcium Citrate + D 3 [Concomitant]
  9. CRESEMBA [Concomitant]
     Active Substance: ISAVUCONAZONIUM SULFATE
  10. ENOXAPARIN [Concomitant]
     Active Substance: ENOXAPARIN
  11. FINASTERIDE [Concomitant]
     Active Substance: FINASTERIDE
  12. FUROSEMIDE [Concomitant]
     Active Substance: FUROSEMIDE
  13. Mag -g [Concomitant]
  14. Metocloperamide [Concomitant]
  15. METOPROLOL SUCCINATE [Concomitant]
     Active Substance: METOPROLOL SUCCINATE
  16. MYCOPHENOLIC ACID [Concomitant]
     Active Substance: MYCOPHENOLIC ACID
  17. Novolin N U-100 Flexpen [Concomitant]
  18. OMEPRAZOLE [Concomitant]
     Active Substance: OMEPRAZOLE
  19. One Touch Delica Plus 30 G Lancets [Concomitant]
  20. One Touch ultra Blue test strips [Concomitant]
  21. Prednisone, Valganciclovir [Concomitant]
  22. QUETIAPINE [Concomitant]
     Active Substance: QUETIAPINE
  23. ROSUVASTATIN [Concomitant]
     Active Substance: ROSUVASTATIN

REACTIONS (4)
  - Chest pain [None]
  - Oxygen saturation decreased [None]
  - Bacteraemia [None]
  - Pulmonary embolism [None]

NARRATIVE: CASE EVENT DATE: 20250617
